FAERS Safety Report 6427542-1 (Version None)
Quarter: 2009Q4

REPORT INFORMATION
  Report Type: 
  Country: None (occurrence: None)
  Receive Date: 20091104
  Receipt Date: 20091028
  Transmission Date: 20100525
  Serious: Yes (Other)
  Sender: FDA-Public Use
  Company Number: US-ABBOTT-09P-163-0605458-00

PATIENT
  Sex: Female
  Weight: 54.48 kg

DRUGS (4)
  1. HUMIRA [Suspect]
     Indication: RHEUMATOID ARTHRITIS
     Dates: start: 20080501
  2. FUROSEMIDE [Concomitant]
     Indication: OEDEMA PERIPHERAL
  3. FUROSEMIDE [Concomitant]
     Indication: FLUID RETENTION
  4. PREDNISONE TAB [Concomitant]
     Indication: RHEUMATOID ARTHRITIS

REACTIONS (4)
  - ANXIETY [None]
  - CHEST PAIN [None]
  - STRESS [None]
  - VASCULITIS [None]
